FAERS Safety Report 11525870 (Version 1)
Quarter: 2015Q3

REPORT INFORMATION
  Report Type: Spontaneous
  Country: US (occurrence: US)
  Receive Date: 20150918
  Receipt Date: 20150918
  Transmission Date: 20151125
  Serious: Yes (Death, Other)
  Sender: FDA-Public Use
  Company Number: US-TAKEDA-TPA2012A03645

PATIENT

DRUGS (3)
  1. ACTOS [Suspect]
     Active Substance: PIOGLITAZONE HYDROCHLORIDE
     Indication: TYPE 2 DIABETES MELLITUS
     Dosage: 15 MG, UNK
     Route: 048
     Dates: start: 20031203
  2. AVANDIA [Concomitant]
     Active Substance: ROSIGLITAZONE MALEATE
  3. METFORMIN [Concomitant]
     Active Substance: METFORMIN HYDROCHLORIDE

REACTIONS (12)
  - Metastases to reproductive organ [Unknown]
  - Blood urine present [Unknown]
  - Back pain [Unknown]
  - Death [Fatal]
  - Weight decreased [Unknown]
  - Abdominal pain lower [Unknown]
  - Dysuria [Unknown]
  - Metastatic carcinoma of the bladder [Unknown]
  - Decreased appetite [Unknown]
  - Micturition urgency [Unknown]
  - Pollakiuria [Unknown]
  - Gastrointestinal disorder [Unknown]
